FAERS Safety Report 6745692-7 (Version None)
Quarter: 2010Q2

REPORT INFORMATION
  Report Type: 
  Country: None (occurrence: None)
  Receive Date: 20100528
  Receipt Date: 20100519
  Transmission Date: 20101027
  Serious: Yes (Hospitalization)
  Sender: FDA-Public Use
  Company Number: US-GENZYME-FABR-1001396

PATIENT

DRUGS (4)
  1. FABRAZYME [Suspect]
     Indication: FABRY'S DISEASE
     Dosage: 90 MG, Q2W
     Route: 042
     Dates: start: 20030729
  2. FABRAZYME [Suspect]
     Dosage: UNK
     Route: 042
     Dates: start: 20030701, end: 20051001
  3. FABRAZYME [Suspect]
     Dosage: UNK
     Route: 042
     Dates: start: 20080601, end: 20090701
  4. FABRAZYME [Suspect]
     Dosage: UNK
     Route: 042
     Dates: start: 20060517, end: 20070601

REACTIONS (1)
  - DEVICE RELATED INFECTION [None]
